FAERS Safety Report 20495706 (Version 1)
Quarter: 2022Q1

REPORT INFORMATION
  Report Type: Spontaneous
  Country: US (occurrence: US)
  Receive Date: 20220221
  Receipt Date: 20220221
  Transmission Date: 20220423
  Serious: No
  Sender: FDA-Public Use
  Company Number: US-PERRIGO-21US024747

PATIENT
  Age: 10 Year
  Sex: Female

DRUGS (2)
  1. IBUPROFEN [Suspect]
     Active Substance: IBUPROFEN
     Indication: Product used for unknown indication
     Dosage: UNKNOWN, UNKNOWN
     Route: 048
     Dates: start: 20210905, end: 20210905
  2. IBUPROFEN [Suspect]
     Active Substance: IBUPROFEN
     Dosage: 250 MG, SINGLE
     Route: 048
     Dates: start: 20210904, end: 20210904

REACTIONS (3)
  - Dependence [Unknown]
  - Abdominal pain upper [Unknown]
  - Incorrect dose administered [Recovered/Resolved]

NARRATIVE: CASE EVENT DATE: 20210904
